FAERS Safety Report 5571621-8 (Version None)
Quarter: 2007Q4

REPORT INFORMATION
  Report Type: 
  Country: None (occurrence: None)
  Receive Date: 20071221
  Receipt Date: 20071015
  Transmission Date: 20080405
  Serious: Yes (Hospitalization, Other)
  Sender: FDA-Public Use
  Company Number: US-BRISTOL-MYERS SQUIBB COMPANY-13910815

PATIENT
  Age: 83 Year
  Sex: Female

DRUGS (6)
  1. SPRYCEL [Suspect]
     Dates: start: 20061020
  2. AMITRIPTLINE HCL [Concomitant]
  3. HYDROCHLOROTHIAZIDE [Concomitant]
  4. TYLENOL [Concomitant]
  5. MUCINEX [Concomitant]
  6. HYDREA [Concomitant]
     Dates: end: 20061020

REACTIONS (4)
  - CARDIAC FAILURE CONGESTIVE [None]
  - CEREBROVASCULAR ACCIDENT [None]
  - MYOCARDIAL INFARCTION [None]
  - PNEUMONIA [None]
